FAERS Safety Report 21147343 (Version 1)
Quarter: 2022Q3

REPORT INFORMATION
  Report Type: Spontaneous
  Country: DK (occurrence: DK)
  Receive Date: 20220729
  Receipt Date: 20220729
  Transmission Date: 20221027
  Serious: Yes (Disabling, Other)
  Sender: FDA-Public Use
  Company Number: DK-PFIZER INC-PV202200031361

PATIENT
  Age: 75 Year
  Sex: Female

DRUGS (2)
  1. RITUXIMAB [Suspect]
     Active Substance: RITUXIMAB
     Indication: Progressive multifocal leukoencephalopathy
     Dosage: UNK, CYCLIC
  2. IBRUTINIB [Suspect]
     Active Substance: IBRUTINIB
     Indication: Progressive multifocal leukoencephalopathy
     Dosage: UNK, CYCLIC

REACTIONS (1)
  - Blindness cortical [Unknown]
